FAERS Safety Report 5630448-9 (Version None)
Quarter: 2008Q1

REPORT INFORMATION
  Report Type: 
  Country: None (occurrence: None)
  Receive Date: 20080219
  Receipt Date: 20080208
  Transmission Date: 20080703
  Serious: Yes (Death)
  Sender: FDA-Public Use
  Company Number: US-ROCHE-542226

PATIENT
  Age: 53 Year
  Sex: Male

DRUGS (1)
  1. CAPECITABINE [Suspect]
     Indication: DRUG USE FOR UNKNOWN INDICATION
     Dosage: DOSAGE REGIMEN REPORTED AS TWO TABLETS EVERY MORNING AND TWO TABLETS EVERY EVENING
     Route: 065
     Dates: start: 20071208, end: 20071221

REACTIONS (1)
  - OESOPHAGEAL CANCER METASTATIC [None]
